FAERS Safety Report 6360213-9 (Version None)
Quarter: 2009Q3

REPORT INFORMATION
  Report Type: 
  Country: None (occurrence: None)
  Receive Date: 20090917
  Receipt Date: 20090908
  Transmission Date: 20100115
  Serious: No
  Sender: FDA-Public Use
  Company Number: US-B.I. PHARMACEUTICALS,INC./RIDGEFIELD-2009-BP-10599BP

PATIENT
  Age: 51 Year
  Sex: Female

DRUGS (1)
  1. ZANTAC 150 [Suspect]
     Indication: HYPERCHLORHYDRIA
     Dosage: 150 MG
     Dates: start: 20090908

REACTIONS (5)
  - DIARRHOEA [None]
  - GENERALISED ERYTHEMA [None]
  - NAUSEA [None]
  - PRURITUS [None]
  - VOMITING [None]
